FAERS Safety Report 21491272 (Version 1)
Quarter: 2022Q4

REPORT INFORMATION
  Report Type: Spontaneous
  Country: CA (occurrence: CA)
  Receive Date: 20221021
  Receipt Date: 20221021
  Transmission Date: 20230113
  Serious: Yes (Other)
  Sender: FDA-Public Use
  Company Number: None

PATIENT
  Age: 67 Year
  Sex: Male

DRUGS (3)
  1. HYDROXYCHLOROQUINE [Suspect]
     Active Substance: HYDROXYCHLOROQUINE
     Indication: Product used for unknown indication
     Route: 065
  2. RITUXIMAB [Suspect]
     Active Substance: RITUXIMAB
     Indication: Granulomatosis with polyangiitis
     Route: 042
  3. DENOSUMAB [Concomitant]
     Active Substance: DENOSUMAB
     Dosage: SOLUTION SUBCUTANEOUS
     Route: 065

REACTIONS (7)
  - Coeliac disease [Recovered/Resolved]
  - Discomfort [Recovered/Resolved]
  - Hypersensitivity [Recovered/Resolved]
  - Injection site extravasation [Recovered/Resolved]
  - Intentional product use issue [Unknown]
  - Swelling [Recovered/Resolved]
  - Urticaria [Recovered/Resolved]
